FAERS Safety Report 8906719 (Version 1)
Quarter: 2012Q4

REPORT INFORMATION
  Report Type: 
  Country: SE (occurrence: SE)
  Receive Date: 20121114
  Receipt Date: 20121114
  Transmission Date: 20130627
  Serious: Yes (Hospitalization)
  Sender: FDA-Public Use
  Company Number: SE-PFIZER INC-2012280309

PATIENT
  Age: 32 Year
  Sex: Female
  Weight: 85.5 kg

DRUGS (7)
  1. GENOTROPIN [Suspect]
     Dosage: 1.2 mg, 1x/day, 7 injections/week
     Route: 058
     Dates: start: 20010315
  2. BRICANYL [Concomitant]
     Indication: ALLERGY
     Dosage: UNK
     Dates: start: 20040922
  3. CLARITYN [Concomitant]
     Indication: ALLERGY
     Dosage: UNK
     Dates: start: 20040922
  4. BETAPRED [Concomitant]
     Indication: ALLERGY
     Dosage: UNK
     Dates: start: 20040922
  5. SEROSCAND [Concomitant]
     Indication: DEPRESSION
     Dosage: UNK
     Dates: start: 20040922
  6. LEVAXIN [Concomitant]
     Indication: THYROID STIMULATING HORMONE DECREASED
     Dosage: UNK
     Dates: start: 19950101
  7. LEVAXIN [Concomitant]
     Indication: PRIMARY HYPOTHYROIDISM

REACTIONS (1)
  - Asthma [Unknown]
